FAERS Safety Report 17756545 (Version 3)
Quarter: 2021Q2

REPORT INFORMATION
  Report Type: Spontaneous
  Country: IT (occurrence: IT)
  Receive Date: 20200507
  Receipt Date: 20210614
  Transmission Date: 20210716
  Serious: Yes (Other)
  Sender: FDA-Public Use
  Company Number: IT-LUPIN PHARMACEUTICALS INC.-2020-02003

PATIENT
  Age: 23 Year
  Sex: Male

DRUGS (7)
  1. SEROPRAM (CITALOPRAM HYDROCHLORIDE) [Suspect]
     Active Substance: CITALOPRAM HYDROCHLORIDE
     Indication: PANIC DISORDER
     Dosage: 20 MILLIGRAM, QD
     Route: 065
  2. MIRTAZAPINE. [Suspect]
     Active Substance: MIRTAZAPINE
     Indication: SEXUAL DYSFUNCTION
     Dosage: UNK
     Route: 065
  3. MIRTAZAPINE. [Suspect]
     Active Substance: MIRTAZAPINE
     Indication: ANXIETY
  4. BUPROPION. [Suspect]
     Active Substance: BUPROPION
     Indication: ANXIETY
  5. TRAZODONE [Suspect]
     Active Substance: TRAZODONE HYDROCHLORIDE
     Indication: ANXIETY
  6. TRAZODONE [Suspect]
     Active Substance: TRAZODONE HYDROCHLORIDE
     Indication: SEXUAL DYSFUNCTION
     Dosage: 40 MILLIGRAM, QD
     Route: 065
  7. BUPROPION. [Suspect]
     Active Substance: BUPROPION
     Indication: SEXUAL DYSFUNCTION
     Dosage: 150 MILLIGRAM, QD
     Route: 065

REACTIONS (7)
  - Ejaculation failure [Recovered/Resolved]
  - Drug ineffective [Unknown]
  - Depressed mood [Recovered/Resolved]
  - Anxiety [Recovered/Resolved]
  - Erectile dysfunction [Recovered/Resolved]
  - Loss of libido [Recovered/Resolved]
  - Sexual dysfunction [Recovered/Resolved]
